FAERS Safety Report 22049956 (Version 1)
Quarter: 2023Q1

REPORT INFORMATION
  Report Type: Spontaneous
  Country: US (occurrence: None)
  Receive Date: 20230228
  Receipt Date: 20230228
  Transmission Date: 20230418
  Serious: No
  Sender: FDA-Public Use
  Company Number: None

PATIENT
  Sex: Male

DRUGS (1)
  1. SILDENAFIL [Suspect]
     Active Substance: SILDENAFIL
     Dosage: 100 MG DAILY ORAL
     Route: 048

REACTIONS (4)
  - Lacrimation increased [None]
  - Vision blurred [None]
  - Abdominal discomfort [None]
  - Heart rate increased [None]
